FAERS Safety Report 4361428-1 (Version None)
Quarter: 2004Q2

REPORT INFORMATION
  Report Type: 
  Country: None (occurrence: None)
  Receive Date: 20040517
  Receipt Date: 20040510
  Transmission Date: 20050107
  Serious: No
  Sender: FDA-Public Use
  Company Number: 04P-048-0260234-00

PATIENT

DRUGS (3)
  1. SEVOFLURANE [Suspect]
     Indication: ANAESTHESIA
     Dosage: INHALATION
     Route: 055
  2. FENTANYL [Concomitant]
  3. PETHIDINE [Concomitant]

REACTIONS (1)
  - DELIRIUM [None]
